FAERS Safety Report 6826803-1 (Version None)
Quarter: 2010Q3

REPORT INFORMATION
  Report Type: 
  Country: None (occurrence: None)
  Receive Date: 20100709
  Receipt Date: 20100629
  Transmission Date: 20110219
  Serious: Yes (Life-Threatening, Hospitalization, Other)
  Sender: FDA-Public Use
  Company Number: US-TEVA-233059USA

PATIENT
  Weight: 3.8 kg

DRUGS (1)
  1. PROGLYCEM SUSPENSION [Suspect]
     Dates: start: 20100314, end: 20100425

REACTIONS (2)
  - CONVULSION [None]
  - PULMONARY HYPERTENSION [None]
